FAERS Safety Report 8430190-5 (Version None)
Quarter: 2012Q2

REPORT INFORMATION
  Report Type: 
  Country: None (occurrence: None)
  Receive Date: 20120612
  Receipt Date: 20120604
  Transmission Date: 20120825
  Serious: Yes (Hospitalization)
  Sender: FDA-Public Use
  Company Number: DE-ROCHE-795503

PATIENT
  Age: 73 Year
  Sex: Female
  Weight: 78.8 kg

DRUGS (6)
  1. PREDNISOLONE [Concomitant]
     Indication: RHEUMATOID ARTHRITIS
     Dosage: LAST ADMINISTRATION PRIOR TO THE EVENT WAS ON 14 JUL 2011
     Dates: start: 19840101, end: 20110714
  2. FOLIC ACID [Concomitant]
     Indication: RHEUMATOID ARTHRITIS
     Dosage: LAST ADMINISTRATION PRIOR TO THE EVENT WAS ON 13 JUL 2011
     Route: 048
     Dates: start: 19840101, end: 20110713
  3. ACTEMRA [Suspect]
     Indication: RHEUMATOID ARTHRITIS
     Route: 042
     Dates: start: 20110406, end: 20110714
  4. VERAPAMIL [Concomitant]
     Indication: HYPERTENSION
     Dosage: LAST ADMINISTRATION PRIOR TO THE EVENT WAS ON 14 JUL 2011
     Route: 048
     Dates: start: 20110101, end: 20110714
  5. METHOTREXATE [Concomitant]
     Indication: RHEUMATOID ARTHRITIS
     Dosage: LAST ADMINISTRATION PRIOR TO THE EVENT WAS ON 12 JUL 2011
     Route: 048
     Dates: start: 19840101, end: 20110712
  6. ASPIRIN [Concomitant]
     Indication: THROMBOSIS PROPHYLAXIS
     Dosage: LAST ADMINISTRATION PRIOR TO THE EVENT WAS ON 14 JUL 2011
     Route: 048
     Dates: start: 20090701, end: 20110714

REACTIONS (1)
  - VOMITING [None]
